FAERS Safety Report 18091304 (Version 1)
Quarter: 2020Q3

REPORT INFORMATION
  Report Type: Spontaneous
  Country: CA (occurrence: CA)
  Receive Date: 20200730
  Receipt Date: 20200730
  Transmission Date: 20201103
  Serious: Yes (Other)
  Sender: FDA-Public Use
  Company Number: CA-ACCORD-192864

PATIENT
  Age: 44 Year
  Sex: Female
  Weight: 80 kg

DRUGS (7)
  1. PLAQUENIL [Concomitant]
     Active Substance: HYDROXYCHLOROQUINE SULFATE
     Route: 065
  2. HYDROXYCHLOROQUINE [Concomitant]
     Active Substance: HYDROXYCHLOROQUINE
     Indication: PSORIATIC ARTHROPATHY
     Dosage: EVERY 1 DAYS
  3. MORPHINE [Concomitant]
     Active Substance: MORPHINE
     Dosage: AS REQUIRED
     Route: 048
  4. METHOTREXATE. [Suspect]
     Active Substance: METHOTREXATE
     Indication: PSORIATIC ARTHROPATHY
     Dosage: 1 EVERY 1 WEEKS
     Route: 058
  5. COSENTYX [Concomitant]
     Active Substance: SECUKINUMAB
     Dosage: 1 EVERY 1 MONTHS
  6. PREDNISONE. [Concomitant]
     Active Substance: PREDNISONE
     Dosage: EVERY 1 DAYS
  7. VENLAFAXINE [Concomitant]
     Active Substance: VENLAFAXINE HYDROCHLORIDE
     Dosage: 1 EVERY 1 DAYS
     Route: 048

REACTIONS (6)
  - Drug ineffective [Unknown]
  - Sinusitis [Not Recovered/Not Resolved]
  - Infection [Not Recovered/Not Resolved]
  - Staphylococcal infection [Not Recovered/Not Resolved]
  - Liver function test increased [Not Recovered/Not Resolved]
  - Product use issue [Unknown]
